FAERS Safety Report 7012421-1 (Version None)
Quarter: 2010Q3

REPORT INFORMATION
  Report Type: 
  Country: None (occurrence: None)
  Receive Date: 20100913
  Receipt Date: 20100212
  Transmission Date: 20110219
  Serious: Yes (Other)
  Sender: FDA-Public Use
  Company Number: 2009-192847-NL

PATIENT
  Age: 20 Year
  Sex: Female
  Weight: 117.9352 kg

DRUGS (3)
  1. IMPLANON [Suspect]
     Indication: CONTRACEPTION
     Dosage: 1 DF; SBDE
     Dates: start: 20081112
  2. EXCEDRIN (CON.) [Concomitant]
  3. HYDROCHLOROTHIAZIDE (CON) [Concomitant]

REACTIONS (10)
  - ACNE [None]
  - AMENORRHOEA [None]
  - BACK PAIN [None]
  - DIZZINESS [None]
  - DYSPEPSIA [None]
  - HYPERTENSION [None]
  - MIGRAINE [None]
  - MOOD SWINGS [None]
  - NAUSEA [None]
  - WEIGHT INCREASED [None]
